FAERS Safety Report 14350190 (Version 3)
Quarter: 2018Q1

REPORT INFORMATION
  Report Type: Report from Study
  Country: US (occurrence: US)
  Receive Date: 20180104
  Receipt Date: 20180226
  Transmission Date: 20180509
  Serious: Yes (Other)
  Sender: FDA-Public Use
  Company Number: US-PFIZER INC-2017400006

PATIENT
  Age: 37 Year
  Sex: Female

DRUGS (4)
  1. IBRANCE [Suspect]
     Active Substance: PALBOCICLIB
     Dosage: 75 MG, CYCLIC (DAILY/3 WEEKS ON, 1 WEEK OFF)
     Route: 048
     Dates: start: 20171010, end: 20171026
  2. IBRANCE [Suspect]
     Active Substance: PALBOCICLIB
     Indication: BREAST CANCER
     Dosage: 100 MG, DAILY
     Route: 048
     Dates: start: 20170827, end: 20170925
  3. IBRANCE [Suspect]
     Active Substance: PALBOCICLIB
     Dosage: 75 MG, CYCLIC (DAILY/3 WEEKS ON, 1 WEEK OFF)
     Route: 048
     Dates: start: 20171113
  4. IBRANCE [Suspect]
     Active Substance: PALBOCICLIB
     Dosage: 75 MG, CYCLIC, (DAILY/2 WEEKS ON AND 1 WEEK OFF)
     Route: 048
     Dates: start: 20171219

REACTIONS (15)
  - Diarrhoea [Not Recovered/Not Resolved]
  - Fatigue [Not Recovered/Not Resolved]
  - Vomiting [Recovering/Resolving]
  - Pyrexia [Recovering/Resolving]
  - Tremor [Recovering/Resolving]
  - Drug dose omission [Unknown]
  - Product use issue [Unknown]
  - White blood cell count decreased [Recovering/Resolving]
  - Influenza [Recovering/Resolving]
  - Vulvovaginal dryness [Unknown]
  - Hot flush [Recovering/Resolving]
  - Nausea [Recovering/Resolving]
  - Migraine [Recovering/Resolving]
  - Bone marrow failure [Unknown]
  - Dyspareunia [Unknown]

NARRATIVE: CASE EVENT DATE: 2017
